FAERS Safety Report 4478489-1 (Version None)
Quarter: 2004Q4

REPORT INFORMATION
  Report Type: 
  Country: None (occurrence: None)
  Receive Date: 20041019
  Receipt Date: 20041006
  Transmission Date: 20050328
  Serious: Yes (Hospitalization)
  Sender: FDA-Public Use
  Company Number: GBWYE093906OCT04

PATIENT
  Age: 38 Year
  Sex: Female

DRUGS (6)
  1. ENBREL [Suspect]
     Indication: JUVENILE ARTHRITIS
     Dosage: UNKNOWN
     Dates: start: 20040101
  2. ENBREL [Suspect]
     Dosage: UNKNWON
     Dates: start: 20040101
  3. TYLEX [Concomitant]
     Indication: JUVENILE ARTHRITIS
     Dosage: 4 TABLETS DAILY
     Route: 048
  4. ZANTAC [Concomitant]
     Indication: JUVENILE ARTHRITIS
     Dates: start: 19990101
  5. FERROUS FUMARATE [Concomitant]
     Indication: JUVENILE ARTHRITIS
  6. MULTIVITAMIN [Concomitant]
     Indication: JUVENILE ARTHRITIS
     Dosage: UNKNOWN

REACTIONS (2)
  - DUODENAL ULCER PERFORATION [None]
  - POSTOPERATIVE INFECTION [None]
